FAERS Safety Report 6312150-3 (Version None)
Quarter: 2009Q3

REPORT INFORMATION
  Report Type: 
  Country: None (occurrence: None)
  Receive Date: 20090813
  Receipt Date: 20090813
  Transmission Date: 20100115
  Serious: Yes (Life-Threatening, Hospitalization)
  Sender: FDA-Public Use
  Company Number: None

PATIENT
  Age: 64 Year
  Sex: Female
  Weight: 86.2 kg

DRUGS (1)
  1. INVANZ [Suspect]
     Indication: ESCHERICHIA URINARY TRACT INFECTION
     Dosage: INVANZ 1 GM Q24H IV
     Route: 042
     Dates: start: 20090612, end: 20090615

REACTIONS (1)
  - CONVULSION [None]
